FAERS Safety Report 7661616-2 (Version None)
Quarter: 2011Q3

REPORT INFORMATION
  Report Type: 
  Country: None (occurrence: None)
  Receive Date: 20110805
  Receipt Date: 20101021
  Transmission Date: 20111222
  Serious: No
  Sender: FDA-Public Use
  Company Number: US-ABBOTT-10P-163-0680985-00

PATIENT
  Age: 52 Year
  Sex: Male
  Weight: 102.15 kg

DRUGS (5)
  1. NIASPAN [Suspect]
     Dates: end: 20100801
  2. QUINAPRIL HCL [Concomitant]
     Indication: HYPERTENSION
  3. NIASPAN [Suspect]
     Indication: BLOOD CHOLESTEROL INCREASED
     Dates: start: 20100801
  4. UROXATROL [Concomitant]
     Indication: PROSTATITIS
  5. NEXIUM [Concomitant]
     Indication: GASTROOESOPHAGEAL REFLUX DISEASE

REACTIONS (1)
  - DIPLOPIA [None]
